FAERS Safety Report 9235238 (Version 1)
Quarter: 2013Q2

REPORT INFORMATION
  Report Type: Spontaneous
  Country: FR (occurrence: FR)
  Receive Date: 20130417
  Receipt Date: 20130417
  Transmission Date: 20140414
  Serious: Yes (Hospitalization)
  Sender: FDA-Public Use
  Company Number: FR-PFIZER INC-2013114064

PATIENT
  Age: 48 Year
  Sex: Female

DRUGS (2)
  1. TRINORDIOL [Suspect]
     Indication: CONTRACEPTION
     Dosage: UNK, DAILY
     Route: 048
     Dates: end: 20121022
  2. LEVOTHYROX [Concomitant]
     Dosage: UNK, DAILY

REACTIONS (3)
  - Cerebral infarction [Recovered/Resolved with Sequelae]
  - Aphasia [Recovered/Resolved with Sequelae]
  - Hemiparesis [Recovered/Resolved with Sequelae]
